FAERS Safety Report 7480461-4 (Version None)
Quarter: 2011Q2

REPORT INFORMATION
  Report Type: 
  Country: None (occurrence: None)
  Receive Date: 20110516
  Receipt Date: 20110503
  Transmission Date: 20111010
  Serious: Yes (Death, Hospitalization, Other)
  Sender: FDA-Public Use
  Company Number: CA-ELI_LILLY_AND_COMPANY-CA201103008430

PATIENT
  Age: 87 Year
  Sex: Male

DRUGS (12)
  1. COUMADIN [Concomitant]
  2. VITAMIN D [Concomitant]
  3. LASIX [Concomitant]
  4. RAMIPRIL [Concomitant]
  5. TRAZODONE HCL [Concomitant]
  6. ATROVENT [Concomitant]
  7. ADVAIR DISKUS 100/50 [Concomitant]
  8. FORTEO [Suspect]
     Indication: OSTEOPOROSIS
     Dosage: 20 UG, QD
     Route: 058
     Dates: start: 20100317
  9. CALCIUM [Concomitant]
  10. VENTOLIN [Concomitant]
  11. ATIVAN [Concomitant]
  12. HYDROMORPHONE HCL [Concomitant]

REACTIONS (2)
  - PNEUMONIA [None]
  - CEREBROVASCULAR ACCIDENT [None]
